FAERS Safety Report 8118763-0 (Version None)
Quarter: 2012Q1

REPORT INFORMATION
  Report Type: 
  Country: None (occurrence: None)
  Receive Date: 20120207
  Receipt Date: 20120202
  Transmission Date: 20120608
  Serious: Yes (Death)
  Sender: FDA-Public Use
  Company Number: JP-SANOFI-AVENTIS-2012SA005751

PATIENT
  Age: 50 Year
  Sex: Male

DRUGS (3)
  1. XELODA [Concomitant]
     Indication: COLON CANCER
     Route: 048
     Dates: start: 20110214, end: 20110922
  2. OXALIPLATIN [Suspect]
     Indication: COLON CANCER
     Route: 041
     Dates: start: 20110214, end: 20110922
  3. AVASTIN [Concomitant]
     Indication: COLON CANCER
     Route: 041
     Dates: start: 20110309, end: 20110922

REACTIONS (1)
  - HEPATIC FAILURE [None]
